FAERS Safety Report 13513975 (Version 6)
Quarter: 2021Q1

REPORT INFORMATION
  Report Type: Spontaneous
  Country: US (occurrence: US)
  Receive Date: 20170504
  Receipt Date: 20210111
  Transmission Date: 20210419
  Serious: No
  Sender: FDA-Public Use
  Company Number: US-PFIZER INC-2017190950

PATIENT
  Age: 49 Year
  Sex: Female
  Weight: 82 kg

DRUGS (14)
  1. METOPROLOL. [Concomitant]
     Active Substance: METOPROLOL
     Dosage: 50 MG, 2X/DAY
  2. HYDROCODONE [Concomitant]
     Active Substance: HYDROCODONE
     Dosage: UNK, 4X/DAY
  3. LEVOTHYROXINE. [Concomitant]
     Active Substance: LEVOTHYROXINE
     Dosage: 100 UG, 1X/DAY
  4. LISINOPRIL. [Concomitant]
     Active Substance: LISINOPRIL
     Dosage: 40 MG, 2X/DAY
  5. FUROSEMIDE. [Concomitant]
     Active Substance: FUROSEMIDE
     Dosage: 40 MG, 2X/DAY
  6. LEFLUNOMIDE. [Concomitant]
     Active Substance: LEFLUNOMIDE
     Indication: RHEUMATOID ARTHRITIS
     Dosage: 20 MG, 1X/DAY
  7. LINZESS [Concomitant]
     Active Substance: LINACLOTIDE
     Dosage: 145 UG, 1X/DAY
  8. METHADONE [Concomitant]
     Active Substance: METHADONE HYDROCHLORIDE
     Dosage: 5 MG, 2X/DAY
  9. CLONIDINE. [Concomitant]
     Active Substance: CLONIDINE
     Dosage: 0.3 MG, UNK
  10. LOVASTATIN. [Concomitant]
     Active Substance: LOVASTATIN
     Dosage: 20 MG, 1X/DAY, (ONE AT BED TIME)
  11. XELJANZ XR [Suspect]
     Active Substance: TOFACITINIB CITRATE
     Dosage: 11 MG, 1X/DAY
     Route: 048
     Dates: end: 20180702
  12. ALPRAZOLAM. [Concomitant]
     Active Substance: ALPRAZOLAM
     Dosage: 1 MG, 2X/DAY
  13. XELJANZ XR [Suspect]
     Active Substance: TOFACITINIB CITRATE
     Indication: RHEUMATOID ARTHRITIS
     Dosage: 11 MG, 1X/DAY
     Route: 048
     Dates: start: 20170307
  14. LOSARTAN. [Concomitant]
     Active Substance: LOSARTAN
     Dosage: 100 MG, 1X/DAY

REACTIONS (3)
  - Asthenia [Unknown]
  - Fatigue [Not Recovered/Not Resolved]
  - Swelling [Unknown]

NARRATIVE: CASE EVENT DATE: 201703
